FAERS Safety Report 22138646 (Version 1)
Quarter: 2023Q1

REPORT INFORMATION
  Report Type: Other
  Country: JP (occurrence: None)
  Receive Date: 20230326
  Receipt Date: 20230326
  Transmission Date: 20230418
  Serious: Yes (Hospitalization)
  Sender: FDA-Public Use
  Company Number: JP-Square-000135

PATIENT
  Age: 76 Year
  Sex: Male

DRUGS (2)
  1. ACYCLOVIR [Suspect]
     Active Substance: ACYCLOVIR
     Indication: Oesophageal ulcer
  2. AMINO ACID CHELATED ZINC [Concomitant]
     Indication: Product used for unknown indication
     Dosage: AMINO ACID INFUSION, WHICH INCLUDED 5 MMOL OF ZINC

REACTIONS (6)
  - Oropharyngeal pain [Unknown]
  - Condition aggravated [Unknown]
  - Oropharyngeal pain [Recovered/Resolved]
  - Glossodynia [Unknown]
  - Zinc deficiency [Recovered/Resolved]
  - Disease recurrence [Recovered/Resolved]
